FAERS Safety Report 6752116-2 (Version None)
Quarter: 2010Q2

REPORT INFORMATION
  Report Type: 
  Country: None (occurrence: None)
  Receive Date: 20100601
  Receipt Date: 20100601
  Transmission Date: 20101027
  Serious: Yes (Other)
  Sender: FDA-Public Use
  Company Number: None

PATIENT
  Age: 36 Year
  Sex: Female
  Weight: 99.7913 kg

DRUGS (2)
  1. ACETAMINOPHEN [Suspect]
     Indication: ANALGESIC THERAPY
     Dosage: HARD TO FIND HARD TO FIND PO
     Route: 048
     Dates: start: 20100530, end: 20100530
  2. ACID REDUCER + ANTACID N/A PEPCID COMPLETE [Suspect]
     Indication: GASTROOESOPHAGEAL REFLUX DISEASE
     Dosage: HARD TO FIND HARD TO FIND PO
     Route: 048
     Dates: start: 20100101, end: 20100530

REACTIONS (4)
  - CIRCUMSTANCE OR INFORMATION CAPABLE OF LEADING TO MEDICATION ERROR [None]
  - FEAR [None]
  - MEDICATION ERROR [None]
  - PHYSICAL PRODUCT LABEL ISSUE [None]
